FAERS Safety Report 8999713 (Version 2)
Quarter: 2013Q1

REPORT INFORMATION
  Report Type: Spontaneous
  Country: JP (occurrence: JP)
  Receive Date: 20130102
  Receipt Date: 20130220
  Transmission Date: 20140127
  Serious: Yes (Other)
  Sender: FDA-Public Use
  Company Number: JP-VIIV HEALTHCARE LIMITED-B0854903A

PATIENT
  Sex: Female

DRUGS (5)
  1. ZIAGEN [Suspect]
     Indication: HIV INFECTION
     Route: 064
  2. RETROVIR [Suspect]
     Indication: HIV INFECTION
     Route: 064
     Dates: start: 2010
  3. VIREAD [Suspect]
     Indication: HIV INFECTION
     Route: 064
  4. KALETRA [Suspect]
     Indication: HIV INFECTION
     Route: 064
  5. ISENTRESS [Suspect]
     Indication: HIV INFECTION
     Route: 064

REACTIONS (5)
  - Foetal growth restriction [Recovering/Resolving]
  - Small for dates baby [Not Recovered/Not Resolved]
  - Hypocalcaemia [Unknown]
  - Bone metabolism disorder [Unknown]
  - Foetal exposure during pregnancy [Unknown]
